FAERS Safety Report 6930865-0 (Version None)
Quarter: 2010Q3

REPORT INFORMATION
  Report Type: 
  Country: None (occurrence: None)
  Receive Date: 20100818
  Receipt Date: 20100806
  Transmission Date: 20110219
  Serious: Yes (Other)
  Sender: FDA-Public Use
  Company Number: US-PFIZER INC-2010099276

PATIENT
  Sex: Female

DRUGS (1)
  1. GLIPIZIDE [Suspect]
     Dosage: 2.5 MG, UNK
     Route: 048
     Dates: start: 20100101

REACTIONS (3)
  - BLOOD GLUCOSE INCREASED [None]
  - MEDICATION RESIDUE [None]
  - PRODUCT SOLUBILITY ABNORMAL [None]
